FAERS Safety Report 6465526-8 (Version None)
Quarter: 2009Q4

REPORT INFORMATION
  Report Type: 
  Country: None (occurrence: None)
  Receive Date: 20091201
  Receipt Date: 20081202
  Transmission Date: 20100525
  Serious: No
  Sender: FDA-Public Use
  Company Number: US-AMGEN-KDL314176

PATIENT
  Sex: Female
  Weight: 80.4 kg

DRUGS (2)
  1. ENBREL [Suspect]
     Indication: RHEUMATOID ARTHRITIS
  2. PLAQUENIL [Concomitant]

REACTIONS (1)
  - DRUG INEFFECTIVE [None]
